FAERS Safety Report 21946049 (Version 5)
Quarter: 2024Q1

REPORT INFORMATION
  Report Type: Spontaneous
  Country: JP (occurrence: JP)
  Receive Date: 20230202
  Receipt Date: 20240312
  Transmission Date: 20240410
  Serious: Yes (Death, Hospitalization, Other)
  Sender: FDA-Public Use
  Company Number: JP-MSD-2212JPN000834J

PATIENT
  Age: 72 Year
  Sex: Male
  Weight: 169.4 kg

DRUGS (10)
  1. KEYTRUDA [Suspect]
     Active Substance: PEMBROLIZUMAB
     Indication: Renal cell carcinoma
     Dosage: 200 MILLIGRAM, Q3W
     Route: 041
     Dates: start: 20221130, end: 20221221
  2. LENVATINIB MESYLATE [Suspect]
     Active Substance: LENVATINIB MESYLATE
     Indication: Renal cell carcinoma
     Dosage: 10 MILLIGRAM, QD
     Route: 048
     Dates: start: 20221130, end: 20221229
  3. LINAGLIPTIN [Concomitant]
     Active Substance: LINAGLIPTIN
     Dosage: 5 MILLIGRAM, QD
     Route: 048
  4. ENTRESTO [Concomitant]
     Active Substance: SACUBITRIL\VALSARTAN
     Dosage: 100 MILLIGRAM, BID
     Route: 048
  5. SPIRONOLACTONE [Concomitant]
     Active Substance: SPIRONOLACTONE
     Dosage: 25 MILLIGRAM, QD
     Route: 048
  6. AZOSEMIDE [Concomitant]
     Active Substance: AZOSEMIDE
     Dosage: 30 MILLIGRAM, QD
     Route: 048
  7. BISOPROLOL FUMARATE [Concomitant]
     Active Substance: BISOPROLOL FUMARATE
     Dosage: 2.5 MILLIGRAM, QD
     Route: 048
  8. EZETIMIBE;PITAVASTATIN CALCIUM [Concomitant]
     Dosage: 2 MILLIGRAM, QD
     Route: 048
  9. POTASSIUM CHLORIDE [Concomitant]
     Active Substance: POTASSIUM CHLORIDE
     Dosage: 1200 MILLIGRAM, BID
     Route: 048
  10. MIYA-BM [Concomitant]
     Active Substance: CLOSTRIDIUM BUTYRICUM SPORES STRAIN M-55
     Dosage: 3 GRAM, TID
     Route: 048

REACTIONS (7)
  - Cardiac failure [Fatal]
  - Pulmonary toxicity [Recovering/Resolving]
  - Immune-mediated hypothyroidism [Recovered/Resolved]
  - Immune-mediated enterocolitis [Unknown]
  - Hypercoagulation [Unknown]
  - Hypertension [Recovering/Resolving]
  - Dysphonia [Recovered/Resolved]

NARRATIVE: CASE EVENT DATE: 20221130
